FAERS Safety Report 7262665-9 (Version None)
Quarter: 2011Q1

REPORT INFORMATION
  Report Type: 
  Country: None (occurrence: None)
  Receive Date: 20110130
  Receipt Date: 20100927
  Transmission Date: 20110831
  Serious: No
  Sender: FDA-Public Use
  Company Number: PR-ABBOTT-10P-163-0673610-00

PATIENT
  Sex: Male
  Weight: 99.88 kg

DRUGS (4)
  1. HUMIRA [Suspect]
     Indication: PSORIASIS
     Route: 058
     Dates: start: 20090701
  2. TOPICAL [Concomitant]
     Indication: PSORIASIS
     Dosage: MIO SALICILIC ACID,COAL TAR, PONDS CREAM, DESONIDE
     Route: 061
  3. HYZAAR [Concomitant]
     Indication: HYPERTENSION
     Dosage: 100/25 MG
     Route: 048
  4. CLOBEX [Concomitant]
     Indication: PSORIASIS
     Dosage: SHAMPOO, AS INDICATED
     Route: 061

REACTIONS (3)
  - PARAESTHESIA [None]
  - ASTHENIA [None]
  - ARTHRITIS [None]
